FAERS Safety Report 13502633 (Version 1)
Quarter: 2017Q2

REPORT INFORMATION
  Report Type: Spontaneous
  Country: BR (occurrence: BR)
  Receive Date: 20170502
  Receipt Date: 20170502
  Transmission Date: 20170830
  Serious: Yes (Other)
  Sender: FDA-Public Use
  Company Number: BR-ABBVIE-17P-020-1961059-00

PATIENT
  Sex: Male
  Weight: 100 kg

DRUGS (2)
  1. ATENOLOL. [Concomitant]
     Active Substance: ATENOLOL
     Indication: TACHYCARDIA
     Route: 048
  2. SYNTHROID [Suspect]
     Active Substance: LEVOTHYROXINE SODIUM
     Indication: THYROIDECTOMY
     Dosage: 125 MCG ONCE IN THE MORNING, FASTING, WITH A LITTLE OF WATER
     Route: 048

REACTIONS (5)
  - Prostatic disorder [Unknown]
  - Poor quality sleep [Unknown]
  - Insomnia [Unknown]
  - Bladder neoplasm [Unknown]
  - Sleep disorder [Not Recovered/Not Resolved]
